FAERS Safety Report 16564016 (Version 1)
Quarter: 2019Q3

REPORT INFORMATION
  Report Type: Report from Study
  Country: US (occurrence: US)
  Receive Date: 20190712
  Receipt Date: 20190712
  Transmission Date: 20191004
  Serious: Yes (Hospitalization)
  Sender: FDA-Public Use
  Company Number: US-BIOGEN-2019BI00760088

PATIENT
  Age: 60 Year
  Sex: Female

DRUGS (1)
  1. TECFIDERA [Suspect]
     Active Substance: DIMETHYL FUMARATE
     Indication: MULTIPLE SCLEROSIS
     Route: 048
     Dates: start: 20190115

REACTIONS (5)
  - Fall [Recovered/Resolved]
  - Femur fracture [Unknown]
  - Seizure [Unknown]
  - Diabetes mellitus inadequate control [Unknown]
  - Tremor [Unknown]

NARRATIVE: CASE EVENT DATE: 20190702
